FAERS Safety Report 14066541 (Version 2)
Quarter: 2017Q4

REPORT INFORMATION
  Report Type: Report from Study
  Country: CN (occurrence: CN)
  Receive Date: 20171010
  Receipt Date: 20171024
  Transmission Date: 20180321
  Serious: Yes (Hospitalization)
  Sender: FDA-Public Use
  Company Number: CN-ROCHE-2000065

PATIENT
  Age: 73 Year
  Sex: Female
  Weight: 56 kg

DRUGS (8)
  1. PERTUZUMAB. [Suspect]
     Active Substance: PERTUZUMAB
     Indication: HER-2 POSITIVE BREAST CANCER
     Dosage: LOADING DOSE
     Route: 042
     Dates: start: 20170322
  2. DOCETAXEL. [Suspect]
     Active Substance: DOCETAXEL
     Indication: HER-2 POSITIVE BREAST CANCER
     Dosage: DATE OF MOST RECENT DOSE 113 MG PRIOR TO SAE ONSET: 05/JUL/2017
     Route: 042
     Dates: start: 20170322
  3. COMPOUND ALLANTOIN LOTION (UNK INGREDIENTS) [Concomitant]
     Indication: RASH MACULO-PAPULAR
     Route: 065
     Dates: start: 20170725
  4. TRASTUZUMAB. [Suspect]
     Active Substance: TRASTUZUMAB
     Indication: HER-2 POSITIVE BREAST CANCER
     Dosage: LOADING DOSE FOR CYCLE 1
     Route: 042
     Dates: start: 20170322
  5. COMPOUND MICONAZOLE CREAM (UNK INGREDIENTS) [Concomitant]
     Indication: RASH MACULO-PAPULAR
     Route: 065
     Dates: start: 20170617
  6. PERTUZUMAB. [Suspect]
     Active Substance: PERTUZUMAB
     Dosage: MAINTENANCE DOSE?DATE OF MOST RECENT DOSE PRIOR TO SAE ONSET: 26/JUL/2017
     Route: 042
     Dates: start: 20170412
  7. FUQINGLE EMULSIFIABLE PASTE (UNK INGREDIENTS) [Concomitant]
     Indication: RASH MACULO-PAPULAR
     Route: 065
     Dates: start: 20170617
  8. TRASTUZUMAB. [Suspect]
     Active Substance: TRASTUZUMAB
     Dosage: MAINTENANCE DOSE?DATE OF MOST RECENT DOSE (330 MG) PRIOR TO SAE ONSET: 26/JUL/2017
     Route: 042
     Dates: start: 20170412

REACTIONS (1)
  - Breast cancer [Recovering/Resolving]

NARRATIVE: CASE EVENT DATE: 20170925
